FAERS Safety Report 13547168 (Version 4)
Quarter: 2017Q2

REPORT INFORMATION
  Report Type: Spontaneous
  Country: US (occurrence: US)
  Receive Date: 20170515
  Receipt Date: 20170620
  Transmission Date: 20170830
  Serious: Yes (Hospitalization, Other)
  Sender: FDA-Public Use
  Company Number: US-BRISTOL-MYERS SQUIBB COMPANY-BMS-2017-040536

PATIENT
  Sex: Male

DRUGS (2)
  1. HYDREA [Concomitant]
     Active Substance: HYDROXYUREA
     Indication: PRODUCT USED FOR UNKNOWN INDICATION
     Route: 065
  2. SPRYCEL [Suspect]
     Active Substance: DASATINIB
     Indication: CHRONIC MYELOID LEUKAEMIA
     Dosage: 100 MG, QD
     Route: 048
     Dates: start: 20170421, end: 20170612

REACTIONS (8)
  - Peripheral swelling [Unknown]
  - Anaemia [Unknown]
  - Chest pain [Unknown]
  - Gout [Unknown]
  - Gait disturbance [Not Recovered/Not Resolved]
  - Yellow skin [Unknown]
  - Pulmonary oedema [Unknown]
  - Pain [Unknown]
